FAERS Safety Report 19707320 (Version 1)
Quarter: 2021Q3

REPORT INFORMATION
  Report Type: Report from Study
  Country: BW (occurrence: BW)
  Receive Date: 20210817
  Receipt Date: 20210817
  Transmission Date: 20211014
  Serious: Yes (Other)
  Sender: FDA-Public Use
  Company Number: BW-MYLANLABS-2021M1050981

PATIENT
  Age: 55 Year
  Sex: Male

DRUGS (1)
  1. DOLUTEGRAVIR/LAMIVUDINE/TENOFOVIR [Suspect]
     Active Substance: DOLUTEGRAVIR\LAMIVUDINE\TENOFOVIR DISOPROXIL FUMARATE
     Indication: HIV INFECTION
     Dosage: UNK
     Route: 065
     Dates: start: 20010507

REACTIONS (2)
  - Drug resistance [Unknown]
  - Virologic failure [Unknown]
